FAERS Safety Report 15687065 (Version 1)
Quarter: 2018Q4

REPORT INFORMATION
  Report Type: Spontaneous
  Country: HR (occurrence: HR)
  Receive Date: 20181204
  Receipt Date: 20181204
  Transmission Date: 20190205
  Serious: Yes (Other)
  Sender: FDA-Public Use
  Company Number: HR-BIOGEN-2018BI00666948

PATIENT
  Age: 15 Year
  Sex: Male
  Weight: 78.5 kg

DRUGS (4)
  1. SPINRAZA [Suspect]
     Active Substance: NUSINERSEN
     Indication: SPINAL MUSCULAR ATROPHY
     Route: 038
     Dates: start: 20180814
  2. PARACETAMOL ACCORD [Concomitant]
     Active Substance: ACETAMINOPHEN
     Indication: ANALGESIC THERAPY
     Route: 042
     Dates: start: 20180814
  3. MOMETASONE FUROATE. [Concomitant]
     Active Substance: MOMETASONE FUROATE
     Indication: VASOMOTOR RHINITIS
     Route: 045
  4. MIDAZOLAM [Concomitant]
     Active Substance: MIDAZOLAM HYDROCHLORIDE
     Indication: SEDATIVE THERAPY
     Route: 030
     Dates: start: 20180814

REACTIONS (1)
  - CSF protein increased [Not Recovered/Not Resolved]

NARRATIVE: CASE EVENT DATE: 20180814
